FAERS Safety Report 20974003 (Version 1)
Quarter: 2022Q2

REPORT INFORMATION
  Report Type: Spontaneous
  Country: FR (occurrence: FR)
  Receive Date: 20220617
  Receipt Date: 20220617
  Transmission Date: 20220721
  Serious: Yes (Hospitalization, Other)
  Sender: FDA-Public Use
  Company Number: FR-AMGEN-FRASP2022102599

PATIENT
  Sex: Female

DRUGS (1)
  1. OTEZLA [Suspect]
     Active Substance: APREMILAST
     Indication: Psoriasis
     Dosage: UNK
     Route: 065
     Dates: start: 20220225, end: 2022

REACTIONS (3)
  - Diarrhoea haemorrhagic [Unknown]
  - Rectal haemorrhage [Unknown]
  - Abscess limb [Unknown]

NARRATIVE: CASE EVENT DATE: 20220101
